FAERS Safety Report 24140967 (Version 1)
Quarter: 2024Q3

REPORT INFORMATION
  Report Type: Spontaneous
  Country: CN (occurrence: None)
  Receive Date: 20240726
  Receipt Date: 20240726
  Transmission Date: 20241017
  Serious: Yes (Other)
  Sender: ASTRAZENECA
  Company Number: 2024A167764

PATIENT
  Age: 83 Year
  Sex: Male
  Weight: 70 kg

DRUGS (4)
  1. TICAGRELOR [Suspect]
     Active Substance: TICAGRELOR
     Indication: Myocardial infarction
     Route: 048
     Dates: start: 20240706, end: 20240706
  2. TICAGRELOR [Suspect]
     Active Substance: TICAGRELOR
     Indication: Myocardial infarction
     Route: 048
     Dates: start: 20240706, end: 20240707
  3. INDOBUFEN [Concomitant]
     Active Substance: INDOBUFEN
     Indication: Myocardial infarction
     Route: 048
     Dates: start: 20240706, end: 20240718
  4. ASPIRIN [Concomitant]
     Active Substance: ASPIRIN
     Indication: Myocardial infarction
     Route: 048
     Dates: start: 20240706, end: 20240706

REACTIONS (1)
  - Chest discomfort [Recovered/Resolved]

NARRATIVE: CASE EVENT DATE: 20240707
